FAERS Safety Report 21916931 (Version 12)
Quarter: 2023Q2

REPORT INFORMATION
  Report Type: Report from Study
  Country: BR (occurrence: None)
  Receive Date: 20230126
  Receipt Date: 20230519
  Transmission Date: 20230722
  Serious: Yes (Hospitalization)
  Sender: FDA-Public Use
  Company Number: BR-ROCHE-3269863

PATIENT
  Age: 40 Year
  Sex: Male
  Weight: 115.6 kg

DRUGS (16)
  1. MOSUNETUZUMAB [Suspect]
     Active Substance: MOSUNETUZUMAB
     Indication: B-cell lymphoma
     Dosage: SHE RECEIVED MOST RECENT DOSE (5 MG) PRIOR SAE ON 13/FEB/2023, START DATE OF MOST RECENT DOSE OF STU
     Route: 058
     Dates: start: 20230118
  2. POLATUZUMAB VEDOTIN [Suspect]
     Active Substance: POLATUZUMAB VEDOTIN
     Indication: B-cell lymphoma
     Dosage: ON 27/FEB/2023, HE RECEIVED ANOTHER DOSE OF INTRAVENOUS POLATUZUMAB, 147.6 MG, START DATE OF MOST R
     Route: 042
     Dates: start: 20230118
  3. NOVALGINA [Concomitant]
     Active Substance: ACETAMINOPHEN\CAFFEINE
     Indication: Pyrexia
     Route: 042
     Dates: start: 20230103, end: 20230103
  4. CEFUROXIME [Concomitant]
     Active Substance: CEFUROXIME
     Indication: Pyrexia
     Route: 042
     Dates: start: 20230103, end: 20230103
  5. DIPYRONE [Concomitant]
     Active Substance: DIPYRONE
     Indication: Pyrexia
     Route: 042
     Dates: start: 20221230, end: 20230105
  6. DIPYRONE [Concomitant]
     Active Substance: DIPYRONE
     Indication: Tumour associated fever
     Dates: start: 20230106, end: 20230321
  7. CEFUROXIME [Concomitant]
     Active Substance: CEFUROXIME
     Indication: Pyrexia
     Route: 042
     Dates: start: 20221230, end: 20230105
  8. CEFTAROLINE [Concomitant]
     Active Substance: CEFTAROLINE
     Indication: Pyrexia
     Route: 042
     Dates: start: 20230103, end: 20230105
  9. OMEPRAZOLE [Concomitant]
     Active Substance: OMEPRAZOLE
     Indication: Gastrointestinal disorder prophylaxis
     Route: 048
     Dates: start: 202204, end: 20230321
  10. BACTRIM [Concomitant]
     Active Substance: SULFAMETHOXAZOLE\TRIMETHOPRIM
     Route: 048
     Dates: start: 202204, end: 20230321
  11. ALLOPURINOL [Concomitant]
     Active Substance: ALLOPURINOL
     Route: 048
     Dates: start: 202204, end: 20230321
  12. MINERAL OIL [Concomitant]
     Active Substance: MINERAL OIL
     Indication: Constipation
     Route: 048
     Dates: start: 20221230, end: 20230120
  13. BISACODIL [Concomitant]
     Indication: Constipation
     Route: 048
     Dates: start: 20221230, end: 20230120
  14. MORPHINE [Concomitant]
     Active Substance: MORPHINE
     Indication: Tumour pain
     Dates: start: 20230106, end: 20230321
  15. ACYCLOVIR [Concomitant]
     Active Substance: ACYCLOVIR
     Route: 048
     Dates: start: 202204, end: 20230321
  16. FILGRASTIM [Concomitant]
     Active Substance: FILGRASTIM
     Dosage: 300 OTHER
     Route: 058
     Dates: start: 20230103, end: 20230210

REACTIONS (2)
  - Infusion related reaction [Recovered/Resolved]
  - Haematological infection [Recovered/Resolved]

NARRATIVE: CASE EVENT DATE: 20230118
